FAERS Safety Report 6829557-8 (Version None)
Quarter: 2010Q3

REPORT INFORMATION
  Report Type: 
  Country: None (occurrence: None)
  Receive Date: 20100709
  Receipt Date: 20070330
  Transmission Date: 20110219
  Serious: No
  Sender: FDA-Public Use
  Company Number: US-PFIZER INC-2007010134

PATIENT
  Sex: Female

DRUGS (5)
  1. CHANTIX [Suspect]
     Indication: SMOKING CESSATION THERAPY
     Route: 048
     Dates: start: 20070101
  2. TOPAMAX [Concomitant]
     Indication: MIGRAINE
  3. ACTONEL [Concomitant]
     Indication: OSTEOPOROSIS
  4. FIORICET [Concomitant]
     Indication: MIGRAINE
     Dosage: 1-2 PER DAY
  5. FLEXERIL [Concomitant]
     Indication: SKIN NODULE
     Dates: start: 20060101

REACTIONS (6)
  - DIARRHOEA [None]
  - FEELING ABNORMAL [None]
  - FLATULENCE [None]
  - INSOMNIA [None]
  - POLLAKIURIA [None]
  - THIRST [None]
